FAERS Safety Report 16373565 (Version 3)
Quarter: 2019Q3

REPORT INFORMATION
  Report Type: Spontaneous
  Country: US (occurrence: US)
  Receive Date: 20190530
  Receipt Date: 20190719
  Transmission Date: 20191004
  Serious: Yes (Hospitalization)
  Sender: FDA-Public Use
  Company Number: US-DUSA PHARMACEUTICALS, INC.-2067606

PATIENT
  Age: 53 Year
  Sex: Female

DRUGS (3)
  1. BLU-U [Suspect]
     Active Substance: DEVICE
  2. BLU-U [Suspect]
     Active Substance: DEVICE
  3. LEVULAN KERASTICK [Suspect]
     Active Substance: AMINOLEVULINIC ACID HYDROCHLORIDE
     Indication: PRODUCT USED FOR UNKNOWN INDICATION
     Route: 061
     Dates: start: 20190510, end: 20190510

REACTIONS (10)
  - White blood cell count decreased [Recovered/Resolved]
  - Platelet count decreased [Recovered/Resolved]
  - Pain [Recovered/Resolved]
  - Headache [Recovered/Resolved]
  - Meningitis viral [Recovered/Resolved]
  - Septic shock [Recovered/Resolved]
  - Hepatic enzyme increased [Recovered/Resolved]
  - Liver disorder [Recovered/Resolved]
  - Pyrexia [Recovered/Resolved]
  - Hepatomegaly [Recovered/Resolved]

NARRATIVE: CASE EVENT DATE: 2019
